FAERS Safety Report 8154601-8 (Version None)
Quarter: 2012Q1

REPORT INFORMATION
  Report Type: 
  Country: None (occurrence: None)
  Receive Date: 20120221
  Receipt Date: 20120214
  Transmission Date: 20120608
  Serious: Yes (Hospitalization)
  Sender: FDA-Public Use
  Company Number: CA-B.I. PHARMACEUTICALS,INC./RIDGEFIELD-2012-CN-00343CN

PATIENT
  Age: 80 Year
  Sex: Female
  Weight: 63 kg

DRUGS (17)
  1. CARDIZEM CD [Concomitant]
     Route: 048
  2. D-TABS [Concomitant]
     Route: 065
  3. SENNA-MINT WAF [Concomitant]
     Route: 065
  4. SEREVENT [Concomitant]
     Route: 065
  5. ACETAMINOPHEN [Concomitant]
     Route: 048
  6. QUETIAPINE [Concomitant]
     Route: 048
  7. NASONEX [Concomitant]
     Route: 065
  8. ALVESCO [Concomitant]
     Route: 065
  9. LIPITOR [Concomitant]
     Route: 048
  10. ACTONEL [Concomitant]
     Route: 048
  11. PANTOPRAZOLE SODIUM [Concomitant]
     Route: 048
  12. REMERON [Concomitant]
     Route: 065
  13. CALCIUM [Concomitant]
     Route: 048
  14. COLACE [Concomitant]
     Route: 048
  15. COUMADIN [Concomitant]
     Route: 065
  16. VITAMIN B-12 [Concomitant]
     Route: 048
  17. PRADAXA [Suspect]
     Dosage: 220 MG
     Route: 048

REACTIONS (1)
  - HEPATITIS [None]
